FAERS Safety Report 23692700 (Version 1)
Quarter: 2024Q1

REPORT INFORMATION
  Report Type: Spontaneous
  Country: US (occurrence: None)
  Receive Date: 20240330
  Receipt Date: 20240330
  Transmission Date: 20240410
  Serious: No
  Sender: FDA-Public Use
  Company Number: None

PATIENT
  Age: 76 Year
  Sex: Male
  Weight: 112.5 kg

DRUGS (1)
  1. BCG VACCINE [Suspect]
     Active Substance: BCG VACCINE
     Indication: Bladder cancer
     Dates: start: 20190729, end: 20191230

REACTIONS (6)
  - Back pain [None]
  - Pain in extremity [None]
  - Peripheral swelling [None]
  - Tuberculosis [None]
  - Tuberculosis [None]
  - Therapy cessation [None]

NARRATIVE: CASE EVENT DATE: 20220531
